FAERS Safety Report 9795647 (Version 2)
Quarter: 2014Q1

REPORT INFORMATION
  Report Type: Spontaneous
  Country: US (occurrence: US)
  Receive Date: 20140103
  Receipt Date: 20140129
  Transmission Date: 20141002
  Serious: No
  Sender: FDA-Public Use
  Company Number: US-PFIZER INC-2013374382

PATIENT
  Sex: Female

DRUGS (3)
  1. LATANOPROST [Suspect]
     Indication: OPEN ANGLE GLAUCOMA
     Dosage: UNK
     Route: 047
     Dates: start: 20130725
  2. LATANOPROST [Suspect]
     Dosage: UNK
     Route: 047
  3. ILEVRO [Concomitant]
     Dosage: UNK
     Route: 047

REACTIONS (2)
  - Eye pain [Unknown]
  - Product quality issue [Unknown]
